FAERS Safety Report 23257680 (Version 1)
Quarter: 2023Q4

REPORT INFORMATION
  Report Type: Spontaneous
  Country: FR (occurrence: FR)
  Receive Date: 20231204
  Receipt Date: 20231204
  Transmission Date: 20240109
  Serious: Yes (Hospitalization)
  Sender: FDA-Public Use
  Company Number: None

PATIENT
  Age: 39 Year
  Sex: Male
  Weight: 65 kg

DRUGS (5)
  1. OXALIPLATIN [Suspect]
     Active Substance: OXALIPLATIN
     Indication: Adenocarcinoma gastric
     Dosage: 85 MG/M2 (85MG/M2 OVER 2H)
     Route: 042
     Dates: start: 20231109, end: 20231109
  2. METHYLPREDNISOLONE [Suspect]
     Active Substance: METHYLPREDNISOLONE
     Indication: Chemotherapy side effect prophylaxis
     Dosage: 80 MG (80MG OVER 10MIN)
     Route: 042
     Dates: start: 20231109, end: 20231109
  3. ONDANSETRON HYDROCHLORIDE [Suspect]
     Active Substance: ONDANSETRON HYDROCHLORIDE
     Indication: Chemotherapy side effect prophylaxis
     Dosage: 3 MG (3MG OVER 10 MIN)
     Route: 042
     Dates: start: 20231109, end: 20231109
  4. POLARAMINE [Suspect]
     Active Substance: DEXCHLORPHENIRAMINE MALEATE
     Indication: Chemotherapy side effect prophylaxis
     Dosage: 5 MG (5MG OVER 10MIN)
     Route: 042
     Dates: start: 20231109, end: 20231109
  5. FLUOROURACIL [Suspect]
     Active Substance: FLUOROURACIL
     Indication: Adenocarcinoma gastric
     Dosage: 4000 MG/M2 (BOLUS 400MG/M2 OVER 15 MIN THEN 2400MG/M2 OVER 48H)
     Route: 042
     Dates: start: 20231109, end: 20231109

REACTIONS (3)
  - Aphasia [Recovering/Resolving]
  - Dysarthria [Recovering/Resolving]
  - Malaise [Recovered/Resolved]

NARRATIVE: CASE EVENT DATE: 20231109
